FAERS Safety Report 4806084-0 (Version None)
Quarter: 2005Q4

REPORT INFORMATION
  Report Type: 
  Country: None (occurrence: None)
  Receive Date: 20051021
  Receipt Date: 20051007
  Transmission Date: 20060501
  Serious: Yes (Other)
  Sender: FDA-Public Use
  Company Number: JP-ROCHE-420737

PATIENT
  Age: 29 Year
  Sex: Female

DRUGS (5)
  1. ROCEPHIN [Suspect]
     Route: 042
     Dates: start: 20051006
  2. CRAVIT [Concomitant]
     Route: 048
  3. DASEN [Concomitant]
     Route: 048
  4. MUCOSOLVAN [Concomitant]
     Route: 048
  5. SURGAM [Concomitant]
     Route: 048

REACTIONS (2)
  - ECZEMA [None]
  - PRURITUS [None]
